FAERS Safety Report 14662687 (Version 2)
Quarter: 2018Q2

REPORT INFORMATION
  Report Type: Report from Study
  Country: DE (occurrence: DE)
  Receive Date: 20180321
  Receipt Date: 20180426
  Transmission Date: 20180711
  Serious: Yes (Hospitalization, Other)
  Sender: FDA-Public Use
  Company Number: DE-BRISTOL-MYERS SQUIBB COMPANY-BMS-2018-024277

PATIENT
  Age: 78 Year
  Sex: Female

DRUGS (1)
  1. APIXABAN [Suspect]
     Active Substance: APIXABAN
     Indication: CEREBROVASCULAR ACCIDENT PROPHYLAXIS
     Dosage: 5 MG, BID
     Route: 048

REACTIONS (7)
  - Fall [Unknown]
  - Dyspnoea [Unknown]
  - Lung infection [Unknown]
  - Femoral neck fracture [Unknown]
  - Cardiac failure [Recovered/Resolved]
  - Dizziness [Unknown]
  - Hip fracture [Recovered/Resolved]

NARRATIVE: CASE EVENT DATE: 2016
